FAERS Safety Report 12203854 (Version 1)
Quarter: 2016Q1

REPORT INFORMATION
  Report Type: Spontaneous
  Country: US (occurrence: US)
  Receive Date: 20160323
  Receipt Date: 20160323
  Transmission Date: 20160526
  Serious: No
  Sender: FDA-Public Use
  Company Number: US-MALLINCKRODT-T201506247

PATIENT
  Age: 68 Year
  Sex: Male
  Weight: 55.33 kg

DRUGS (2)
  1. UVADEX [Suspect]
     Active Substance: METHOXSALEN
     Indication: GRAFT VERSUS HOST DISEASE
     Dosage: 36 TREATMENTS
     Route: 065
     Dates: start: 20140417, end: 20150717
  2. ACDA [Concomitant]
     Indication: PHOTOPHERESIS
     Dosage: A/C RATIO USED 10:1
     Dates: start: 20140417, end: 20150717

REACTIONS (1)
  - Platelet count decreased [Unknown]

NARRATIVE: CASE EVENT DATE: 20150806
